FAERS Safety Report 4705623-8 (Version None)
Quarter: 2005Q3

REPORT INFORMATION
  Report Type: 
  Country: None (occurrence: None)
  Receive Date: 20050701
  Receipt Date: 20020502
  Transmission Date: 20060218
  Serious: Yes (Hospitalization)
  Sender: FDA-Public Use
  Company Number: FR-BOEHRINGER INGELHEIM PHARMACEUTICALS, INC.-2002-FF-00299FF

PATIENT
  Sex: Female

DRUGS (7)
  1. VIRAMUNE [Suspect]
     Indication: HIV INFECTION
     Route: 048
     Dates: start: 20000325, end: 20000325
  2. VIRAMUNE [Suspect]
     Route: 015
  3. RETROVIR [Suspect]
     Indication: HIV INFECTION
     Route: 048
  4. RETROVIR [Suspect]
     Route: 042
     Dates: start: 20000323, end: 20000323
  5. RETROVIR [Suspect]
     Route: 048
     Dates: end: 20000128
  6. ZERIT [Suspect]
     Indication: HIV INFECTION
     Route: 048
  7. EPIVIR [Suspect]
     Indication: HIV INFECTION
     Route: 048

REACTIONS (5)
  - BLOOD CREATINE PHOSPHOKINASE INCREASED [None]
  - BLOOD LACTIC ACID INCREASED [None]
  - DRUG EXPOSURE DURING PREGNANCY [None]
  - GAIT DISTURBANCE [None]
  - HYPERTRIGLYCERIDAEMIA [None]
